FAERS Safety Report 4277167-1 (Version None)
Quarter: 2004Q1

REPORT INFORMATION
  Report Type: 
  Country: None (occurrence: None)
  Receive Date: 20040120
  Receipt Date: 20040109
  Transmission Date: 20041129
  Serious: Yes (Death)
  Sender: FDA-Public Use
  Company Number: FR-JNJFOC-20031201356

PATIENT
  Age: 3 Month
  Sex: Female
  Weight: 4.5 kg

DRUGS (4)
  1. PROPULSID [Suspect]
     Indication: DRUG USE FOR UNKNOWN INDICATION
     Dosage: ORAL
     Route: 048
     Dates: end: 20030901
  2. PROPULSID [Suspect]
     Indication: GASTROOESOPHAGEAL REFLUX DISEASE
     Dosage: ORAL
     Route: 048
     Dates: end: 20030901
  3. JOSACINE (JOSAMYCIN) [Concomitant]
  4. CELESTENE (BETAMETHASONE) DROPS [Concomitant]

REACTIONS (1)
  - DEATH [None]
